FAERS Safety Report 5382393-4 (Version None)
Quarter: 2007Q3

REPORT INFORMATION
  Report Type: 
  Country: None (occurrence: None)
  Receive Date: 20070709
  Receipt Date: 20070628
  Transmission Date: 20080115
  Serious: Yes (Other)
  Sender: FDA-Public Use
  Company Number: JP-MERCK-0706USA01338

PATIENT
  Age: 75 Year
  Sex: Male
  Weight: 70 kg

DRUGS (5)
  1. HYZAAR [Suspect]
     Indication: HYPERTENSION
     Route: 048
     Dates: start: 20070413, end: 20070529
  2. ACECOL [Concomitant]
     Indication: HYPERTENSION
     Route: 048
  3. CARDENALIN [Concomitant]
     Indication: HYPERTENSION
     Route: 048
  4. UBRETID [Suspect]
     Indication: DYSURIA
     Route: 048
     Dates: start: 20070405
  5. FLIVAS [Suspect]
     Indication: DYSURIA
     Route: 048
     Dates: start: 20070405

REACTIONS (2)
  - ANAPHYLACTIC SHOCK [None]
  - URTICARIA [None]
